FAERS Safety Report 9719892 (Version 2)
Quarter: 2014Q2

REPORT INFORMATION
  Report Type: Spontaneous
  Country: GB (occurrence: GB)
  Receive Date: 20131128
  Receipt Date: 20140429
  Transmission Date: 20141212
  Serious: Yes (Death, Hospitalization, Other)
  Sender: FDA-Public Use
  Company Number: GB-JNJFOC-20131113545

PATIENT
  Age: 38 Year
  Sex: Female

DRUGS (2)
  1. PARACETAMOL/CODEINE PHOSPHATE [Suspect]
     Indication: PAIN
     Route: 065
  2. GAVISCON SODIUM ALGINATE/SODIUM BICARBONATE/CALCIUM CARBONATE [Suspect]
     Indication: DYSPEPSIA
     Route: 065

REACTIONS (8)
  - Myocardial rupture [Fatal]
  - Cardiac tamponade [Fatal]
  - Aortic dissection [Fatal]
  - Bicuspid aortic valve [Fatal]
  - Cardiac failure [Fatal]
  - Exposure during pregnancy [Fatal]
  - Circumstance or information capable of leading to medication error [Fatal]
  - Vomiting [Unknown]
